FAERS Safety Report 13361456 (Version 1)
Quarter: 2017Q1

REPORT INFORMATION
  Report Type: Spontaneous
  Country: PL (occurrence: PL)
  Receive Date: 20170323
  Receipt Date: 20170323
  Transmission Date: 20170429
  Serious: Yes (Other)
  Sender: FDA-Public Use
  Company Number: PL-ROCHE-1908356

PATIENT
  Age: 29 Year
  Sex: Female

DRUGS (8)
  1. MYOCET [Concomitant]
     Active Substance: DOXORUBICIN
  2. HERCEPTIN [Suspect]
     Active Substance: TRASTUZUMAB
     Indication: INVASIVE DUCTAL BREAST CARCINOMA
     Route: 042
     Dates: start: 201508
  3. CAPECITABINE. [Suspect]
     Active Substance: CAPECITABINE
     Indication: INVASIVE DUCTAL BREAST CARCINOMA
     Route: 065
     Dates: start: 20160727, end: 20160908
  4. NAVELBINE [Suspect]
     Active Substance: VINORELBINE TARTRATE
     Indication: INVASIVE DUCTAL BREAST CARCINOMA
     Route: 065
     Dates: start: 20160727, end: 20160908
  5. CISPLATIN. [Concomitant]
     Active Substance: CISPLATIN
     Dosage: 2 COURSES
     Route: 065
     Dates: start: 20160913, end: 20160920
  6. PACLITAXEL. [Suspect]
     Active Substance: PACLITAXEL
     Indication: INVASIVE DUCTAL BREAST CARCINOMA
     Route: 065
     Dates: start: 201508
  7. GEMZAR [Concomitant]
     Active Substance: GEMCITABINE HYDROCHLORIDE
     Dosage: 9 COURSES
     Route: 065
     Dates: start: 20160927, end: 20170111
  8. CISPLATIN. [Concomitant]
     Active Substance: CISPLATIN
     Route: 065
     Dates: start: 20160927, end: 20170111

REACTIONS (6)
  - Breast neoplasm [Unknown]
  - Adhesion [Unknown]
  - Invasive breast carcinoma [Unknown]
  - Breast disorder [Unknown]
  - Neuropathy peripheral [Unknown]
  - Breast pain [Unknown]

NARRATIVE: CASE EVENT DATE: 201603
